FAERS Safety Report 10333493 (Version 5)
Quarter: 2016Q2

REPORT INFORMATION
  Report Type: Report from Study
  Country: BR (occurrence: BR)
  Receive Date: 20140722
  Receipt Date: 20160425
  Transmission Date: 20160815
  Serious: Yes (Hospitalization, Disabling, Other)
  Sender: FDA-Public Use
  Company Number: BR-ABBVIE-10P-020-0637180-00

PATIENT
  Sex: Female
  Weight: 90 kg

DRUGS (20)
  1. BROMAZEPAM [Concomitant]
     Active Substance: BROMAZEPAM
     Indication: SEDATIVE THERAPY
  2. NIMESULIDE [Concomitant]
     Active Substance: NIMESULIDE
     Indication: PAIN
     Route: 048
  3. BROMAZEPAM [Concomitant]
     Active Substance: BROMAZEPAM
     Indication: ANXIOLYTIC THERAPY
     Route: 048
  4. NIMESULIDE [Concomitant]
     Active Substance: NIMESULIDE
     Indication: DEPRESSION
  5. MELOXICAM. [Concomitant]
     Active Substance: MELOXICAM
     Indication: RHEUMATOID ARTHRITIS
     Route: 048
  6. BROMAZEPAM [Concomitant]
     Active Substance: BROMAZEPAM
     Indication: SLEEP DISORDER THERAPY
  7. PREDNISONE/MELOXICAM/RANITIDINE [Concomitant]
     Indication: RHEUMATOID ARTHRITIS
     Dosage: 7.5MG/15MG/200MG
     Route: 048
  8. OMEPRAZOLE. [Concomitant]
     Active Substance: OMEPRAZOLE
     Indication: GASTRIC DISORDER
     Route: 048
  9. OMEPRAZOLE. [Concomitant]
     Active Substance: OMEPRAZOLE
     Indication: PROPHYLAXIS
  10. HUMIRA [Suspect]
     Active Substance: ADALIMUMAB
     Indication: RHEUMATOID ARTHRITIS
     Route: 058
     Dates: start: 20090101
  11. SERTRALINE [Concomitant]
     Active Substance: SERTRALINE HYDROCHLORIDE
     Indication: DEPRESSION
     Route: 048
  12. NIMESULIDE/CYCLOBENZAPRINE [Concomitant]
     Indication: HEADACHE
     Dosage: 100MG/10MG
     Route: 048
  13. LOSARTAN. [Concomitant]
     Active Substance: LOSARTAN
     Indication: HYPERTENSION
     Route: 048
  14. VALSARTAN. [Concomitant]
     Active Substance: VALSARTAN
     Indication: HYPERTENSION
     Route: 048
  15. CLONAZEPAM. [Concomitant]
     Active Substance: CLONAZEPAM
     Indication: SLEEP DISORDER THERAPY
     Route: 048
     Dates: start: 1996
  16. DEFLAZACORT [Concomitant]
     Active Substance: DEFLAZACORT
     Indication: RHEUMATOID ARTHRITIS
     Route: 048
  17. CYCLOBENZAPRINE [Concomitant]
     Active Substance: CYCLOBENZAPRINE
     Indication: PAIN
     Route: 048
  18. METHOTREXATE [Concomitant]
     Active Substance: METHOTREXATE
     Indication: RHEUMATOID ARTHRITIS
     Route: 048
  19. CYCLOBENZAPRINE [Concomitant]
     Active Substance: CYCLOBENZAPRINE
     Indication: DEPRESSION
  20. DIPROSPAN FAST [Concomitant]
     Indication: PAIN
     Route: 048

REACTIONS (21)
  - Foot deformity [Recovered/Resolved]
  - Skin ulcer [Recovering/Resolving]
  - Arthropathy [Not Recovered/Not Resolved]
  - Wound [Recovering/Resolving]
  - Arthralgia [Not Recovered/Not Resolved]
  - Cardiovascular disorder [Unknown]
  - Wound dehiscence [Unknown]
  - Peripheral swelling [Recovered/Resolved]
  - Impaired healing [Not Recovered/Not Resolved]
  - Blood triglycerides abnormal [Recovered/Resolved]
  - Pneumonia [Recovered/Resolved]
  - Dysentery [Recovered/Resolved]
  - Malaise [Recovered/Resolved]
  - Foot deformity [Not Recovered/Not Resolved]
  - Pain in extremity [Not Recovered/Not Resolved]
  - Gait disturbance [Not Recovered/Not Resolved]
  - Skin ulcer [Not Recovered/Not Resolved]
  - Weight decreased [Not Recovered/Not Resolved]
  - Postoperative thrombosis [Recovered/Resolved]
  - Skin ulcer [Recovered/Resolved]
  - Joint range of motion decreased [Not Recovered/Not Resolved]

NARRATIVE: CASE EVENT DATE: 2010
